FAERS Safety Report 4638852-2 (Version None)
Quarter: 2005Q2

REPORT INFORMATION
  Report Type: 
  Country: None (occurrence: None)
  Receive Date: 20050415
  Receipt Date: 20050415
  Transmission Date: 20051028
  Serious: Yes (Hospitalization)
  Sender: FDA-Public Use
  Company Number: None

PATIENT
  Age: 48 Year
  Sex: Female
  Weight: 80 kg

DRUGS (4)
  1. TAXOL [Suspect]
     Indication: BREAST CANCER
     Dosage: 80MG/M2 WKLY, X 16
     Dates: start: 20041029, end: 20050218
  2. CARBOPLATIN [Suspect]
     Dosage: AUC 6 , WKS 1, 5, 9, 13
     Dates: start: 20041029, end: 20050128
  3. LEXAPRO [Concomitant]
  4. VICODIN [Concomitant]

REACTIONS (4)
  - ARTHRALGIA [None]
  - BACK PAIN [None]
  - DYSPNOEA [None]
  - PULMONARY EMBOLISM [None]
